FAERS Safety Report 5963357-6 (Version None)
Quarter: 2008Q4

REPORT INFORMATION
  Report Type: 
  Country: None (occurrence: None)
  Receive Date: 20081124
  Receipt Date: 20081118
  Transmission Date: 20090506
  Serious: Yes (Disabling)
  Sender: FDA-Public Use
  Company Number: B0329162A

PATIENT
  Age: 27 Year
  Sex: Female

DRUGS (5)
  1. MALARONE [Suspect]
     Indication: MALARIA PROPHYLAXIS
     Dates: start: 20021216, end: 20030104
  2. MALARONE [Suspect]
     Dosage: 350MG PER DAY
     Route: 048
     Dates: start: 20031004, end: 20040106
  3. MINULET [Concomitant]
     Indication: CONTRACEPTION
     Route: 048
  4. TYPHOID VACCINE [Concomitant]
     Indication: PROPHYLAXIS
     Route: 048
  5. YELLOW FEVER VACCINE [Concomitant]
     Indication: PROPHYLAXIS

REACTIONS (4)
  - ALOPECIA [None]
  - DEPRESSION [None]
  - EYE DISORDER [None]
  - GENERAL PHYSICAL HEALTH DETERIORATION [None]
